FAERS Safety Report 7711623-6 (Version None)
Quarter: 2011Q3

REPORT INFORMATION
  Report Type: 
  Country: None (occurrence: None)
  Receive Date: 20110826
  Receipt Date: 20110613
  Transmission Date: 20111222
  Serious: No
  Sender: FDA-Public Use
  Company Number: US-BRISTOL-MYERS SQUIBB COMPANY-15802861

PATIENT
  Age: 35 Year
  Sex: Female

DRUGS (2)
  1. ONGLYZA [Suspect]
     Route: 048
     Dates: start: 20110525
  2. DEXLANSOPRAZOLE [Concomitant]

REACTIONS (3)
  - MYALGIA [None]
  - MUSCLE SPASMS [None]
  - ARTHRALGIA [None]
